FAERS Safety Report 7944159-8 (Version None)
Quarter: 2011Q4

REPORT INFORMATION
  Report Type: 
  Country: None (occurrence: None)
  Receive Date: 20111129
  Receipt Date: 20111117
  Transmission Date: 20120403
  Serious: Yes (Hospitalization)
  Sender: FDA-Public Use
  Company Number: US-BIOGENIDEC-2010BI012051

PATIENT
  Age: 42 Year
  Sex: Female

DRUGS (1)
  1. TYSABRI [Suspect]
     Indication: MULTIPLE SCLEROSIS
     Route: 042
     Dates: start: 20071214, end: 20110602

REACTIONS (5)
  - ROTATOR CUFF SYNDROME [None]
  - FALL [None]
  - NAUSEA [None]
  - VOMITING [None]
  - INTERVERTEBRAL DISC PROTRUSION [None]
